FAERS Safety Report 16658572 (Version 2)
Quarter: 2019Q3

REPORT INFORMATION
  Report Type: Spontaneous
  Country: US (occurrence: US)
  Receive Date: 20190801
  Receipt Date: 20190814
  Transmission Date: 20191004
  Serious: Yes (Hospitalization, Other)
  Sender: FDA-Public Use
  Company Number: US-009507513-1808USA003550

PATIENT
  Sex: Female
  Weight: 71.2 kg

DRUGS (6)
  1. HYDROXYZINE PAMOATE. [Concomitant]
     Active Substance: HYDROXYZINE PAMOATE
     Indication: NAUSEA
     Dosage: ONE OR TWO PO EVERY 6 HOURS PRN ANXIETY OR NAUSEA
     Route: 048
     Dates: start: 20091120
  2. ZOSTAVAX [Suspect]
     Active Substance: VARICELLA-ZOSTER VIRUS STRAIN OKA/MERCK LIVE ANTIGEN
     Indication: PROPHYLAXIS
     Route: 030
     Dates: start: 2011
  3. ZOSTAVAX [Suspect]
     Active Substance: VARICELLA-ZOSTER VIRUS STRAIN OKA/MERCK LIVE ANTIGEN
     Indication: ROUTINE HEALTH MAINTENANCE
  4. HYDROXYZINE PAMOATE. [Concomitant]
     Active Substance: HYDROXYZINE PAMOATE
     Indication: ANXIETY
  5. NASONEX [Concomitant]
     Active Substance: MOMETASONE FUROATE
     Dosage: 1 SQUIRT EACH NOSTRIL DAILY
     Route: 045
     Dates: start: 20090917
  6. PREMARIN [Concomitant]
     Active Substance: ESTROGENS, CONJUGATED
     Dosage: ONE APPLICATORFUL VAGINALLY AT HS EVERY OTHER DAY
     Route: 067
     Dates: start: 20090917

REACTIONS (21)
  - Neuropathy peripheral [Unknown]
  - Arthralgia [Unknown]
  - Fungal infection [Unknown]
  - Dermatitis [Unknown]
  - Headache [Unknown]
  - Expired product administered [Unknown]
  - Asthma [Unknown]
  - Nail pitting [Unknown]
  - Bipolar disorder [Unknown]
  - Anxiety disorder [Not Recovered/Not Resolved]
  - Skin candida [Unknown]
  - Hyperkeratosis [Unknown]
  - Abdominoplasty [Unknown]
  - Herpes zoster [Unknown]
  - Peripheral swelling [Unknown]
  - Hernia repair [Unknown]
  - Vaccination failure [Unknown]
  - Infection [Unknown]
  - Overweight [Not Recovered/Not Resolved]
  - Pain [Unknown]
  - Temporal arteritis [Unknown]

NARRATIVE: CASE EVENT DATE: 2011
